FAERS Safety Report 5987190-4 (Version None)
Quarter: 2008Q4

REPORT INFORMATION
  Report Type: 
  Country: None (occurrence: None)
  Receive Date: 20081209
  Receipt Date: 20081128
  Transmission Date: 20090506
  Serious: Yes (Life-Threatening, Other)
  Sender: FDA-Public Use
  Company Number: IT-ELI_LILLY_AND_COMPANY-IT200809004154

PATIENT
  Sex: Female

DRUGS (5)
  1. BYETTA [Suspect]
     Indication: TYPE 2 DIABETES MELLITUS
     Dosage: 10 UG, DAILY (1/D)
     Route: 058
     Dates: start: 20080528, end: 20080731
  2. SEREUPIN [Concomitant]
     Dosage: 20 MG, UNKNOWN
     Route: 048
     Dates: start: 20060213, end: 20081023
  3. BENZOFIBRATE [Concomitant]
     Dosage: 400 MG, UNKNOWN
     Route: 048
     Dates: start: 20021102, end: 20041023
  4. METFORMIN HCL [Concomitant]
     Dosage: UNK, UNKNOWN
     Route: 048
     Dates: start: 20001013, end: 20081023
  5. GLYBURIDE [Concomitant]
     Dosage: 3 D/F, DAILY (1/D)
     Route: 048
     Dates: start: 20001013, end: 20081023

REACTIONS (8)
  - ABDOMINAL PAIN UPPER [None]
  - DIABETES MELLITUS INADEQUATE CONTROL [None]
  - DIARRHOEA [None]
  - NAUSEA [None]
  - PANCREATITIS [None]
  - PYREXIA [None]
  - VOMITING [None]
  - WEIGHT DECREASED [None]
